FAERS Safety Report 12984205 (Version 1)
Quarter: 2016Q4

REPORT INFORMATION
  Report Type: Spontaneous
  Country: US (occurrence: US)
  Receive Date: 20161129
  Receipt Date: 20161129
  Transmission Date: 20170207
  Serious: Yes (Death)
  Sender: FDA-Public Use
  Company Number: US-ASTELLAS-2016US027558

PATIENT
  Age: 77 Year
  Sex: Female

DRUGS (1)
  1. PROGRAF [Suspect]
     Active Substance: TACROLIMUS\TACROLIMUS ANHYDROUS
     Indication: RENAL TRANSPLANT
     Dosage: 1 MG, TWICE DAILY (1 CAPSULE EVERY 12 HOURS FOR 30 DAYS)
     Route: 048
     Dates: start: 20050805, end: 20161114

REACTIONS (1)
  - Death [Fatal]

NARRATIVE: CASE EVENT DATE: 20161114
